FAERS Safety Report 20451696 (Version 2)
Quarter: 2022Q1

REPORT INFORMATION
  Report Type: Spontaneous
  Country: BE (occurrence: BE)
  Receive Date: 20220209
  Receipt Date: 20220222
  Transmission Date: 20220423
  Serious: Yes (Other)
  Sender: FDA-Public Use
  Company Number: BE-PFIZER INC-202200199628

PATIENT
  Age: 62 Year
  Sex: Male
  Weight: 80 kg

DRUGS (3)
  1. XELJANZ [Suspect]
     Active Substance: TOFACITINIB CITRATE
     Indication: Rheumatoid arthritis
     Dosage: 5 MG, 2X/DAY
     Route: 048
     Dates: start: 201907
  2. REMERGON [Concomitant]
     Active Substance: MIRTAZAPINE
     Indication: Depression
     Dosage: UNK
  3. TRAZODONE [Concomitant]
     Active Substance: TRAZODONE HYDROCHLORIDE
     Indication: Depression
     Dosage: UNK

REACTIONS (1)
  - Parkinson^s disease [Not Recovered/Not Resolved]

NARRATIVE: CASE EVENT DATE: 20220201
